FAERS Safety Report 5116827-7 (Version None)
Quarter: 2006Q3

REPORT INFORMATION
  Report Type: 
  Country: None (occurrence: None)
  Receive Date: 20060928
  Receipt Date: 20051018
  Transmission Date: 20061208
  Serious: Yes (Hospitalization)
  Sender: FDA-Public Use
  Company Number: US-ABBOTT-05P-163-0314411-00

PATIENT
  Sex: Female
  Weight: 95 kg

DRUGS (8)
  1. SYNTHROID [Suspect]
     Indication: HORMONE REPLACEMENT THERAPY
     Route: 048
     Dates: start: 19970101
  2. SYNTHROID [Suspect]
     Route: 048
     Dates: start: 19970101, end: 19980101
  3. BENACAR [Concomitant]
     Indication: BLOOD PRESSURE INCREASED
     Route: 048
     Dates: start: 20050601, end: 20050701
  4. BENACAR [Concomitant]
     Route: 048
     Dates: start: 20050701
  5. BENACAR [Concomitant]
     Route: 048
  6. PARACETAMOL [Concomitant]
     Indication: HEADACHE
     Route: 048
  7. BLOPRESS PLUS [Concomitant]
     Indication: BLOOD PRESSURE
  8. M.V.I. [Concomitant]
     Indication: DRUG USE FOR UNKNOWN INDICATION

REACTIONS (12)
  - ALOPECIA [None]
  - CHEST PAIN [None]
  - DRUG INEFFECTIVE [None]
  - DRY SKIN [None]
  - GASTROOESOPHAGEAL REFLUX DISEASE [None]
  - HAIR TEXTURE ABNORMAL [None]
  - HEADACHE [None]
  - PALPITATIONS [None]
  - SKIN ATROPHY [None]
  - TINNITUS [None]
  - VENTRICULAR EXTRASYSTOLES [None]
  - WEIGHT INCREASED [None]
